FAERS Safety Report 23682824 (Version 6)
Quarter: 2024Q3

REPORT INFORMATION
  Report Type: Spontaneous
  Country: US (occurrence: US)
  Receive Date: 20240328
  Receipt Date: 20240916
  Transmission Date: 20241017
  Serious: Yes (Death)
  Sender: PFIZER
  Company Number: US-PFIZER INC-202400071890

PATIENT
  Age: 10 Year
  Sex: Female
  Weight: 28.1 kg

DRUGS (1)
  1. GENOTROPIN [Suspect]
     Active Substance: SOMATROPIN
     Indication: Turner^s syndrome
     Dosage: 0.8 MG DAILY
     Route: 058
     Dates: start: 20200513

REACTIONS (1)
  - Cardiac procedure complication [Fatal]
